FAERS Safety Report 8994769 (Version 2)
Quarter: 2013Q1

REPORT INFORMATION
  Report Type: Spontaneous
  Country: US (occurrence: US)
  Receive Date: 20130102
  Receipt Date: 20130204
  Transmission Date: 20140127
  Serious: No
  Sender: FDA-Public Use
  Company Number: US-AMGEN-USASP2012078523

PATIENT
  Age: 68 Year
  Sex: Female

DRUGS (2)
  1. ENBREL [Suspect]
     Indication: PSORIASIS
     Dosage: 50 MG, QWK
     Route: 058
     Dates: start: 20081208
  2. CLOBETASOL [Concomitant]
     Dosage: UNK UNK, BID
     Route: 061
     Dates: start: 20110825

REACTIONS (1)
  - Carpal tunnel syndrome [Recovered/Resolved]
